FAERS Safety Report 5102980-8 (Version None)
Quarter: 2006Q3

REPORT INFORMATION
  Report Type: 
  Country: None (occurrence: None)
  Receive Date: 20060907
  Receipt Date: 20060829
  Transmission Date: 20061208
  Serious: Yes (Life-Threatening)
  Sender: FDA-Public Use
  Company Number: FRWYE796529AUG06

PATIENT
  Age: 59 Year
  Sex: Female

DRUGS (12)
  1. TAZOCILLINE (PIPERACILLIN/TAZOBACTAM, INJECTION) [Suspect]
     Dosage: 12 G TOTAL DAILY INTRAVENOUS
     Route: 042
     Dates: start: 20060626, end: 20060718
  2. DIAMICRON (GLICLAZIDE) [Concomitant]
  3. PRIMPERAN TAB [Concomitant]
  4. XANAX [Concomitant]
  5. VANCOMYCIN [Concomitant]
  6. ACARBOSE [Concomitant]
  7. LOVENOX [Concomitant]
  8. LEXOMIL (BROMAZEPAM) [Concomitant]
  9. ZOLPIDEM TARTRATE [Concomitant]
  10. ACUPAN [Concomitant]
  11. FUNGIZONE [Concomitant]
  12. CLONAZEPAM [Concomitant]

REACTIONS (2)
  - AGRANULOCYTOSIS [None]
  - BONE MARROW DISORDER [None]
